FAERS Safety Report 4570521-X (Version None)
Quarter: 2005Q1

REPORT INFORMATION
  Report Type: 
  Country: None (occurrence: None)
  Receive Date: 20050202
  Receipt Date: 20050120
  Transmission Date: 20050727
  Serious: Yes (Other)
  Sender: FDA-Public Use
  Company Number: 2005-DE-00236DE

PATIENT
  Age: 70 Year
  Sex: Female

DRUGS (1)
  1. SIFROL               (PRAMIPEXOLE DIHYDROCHLORIDE) [Suspect]
     Dosage: PO
     Route: 048

REACTIONS (2)
  - BLOOD CREATININE INCREASED [None]
  - RHABDOMYOLYSIS [None]
